FAERS Safety Report 4553093-5 (Version None)
Quarter: 2005Q1

REPORT INFORMATION
  Report Type: 
  Country: None (occurrence: None)
  Receive Date: 20050113
  Receipt Date: 20050105
  Transmission Date: 20050727
  Serious: Yes (Hospitalization, Other)
  Sender: FDA-Public Use
  Company Number: 2005006045

PATIENT
  Sex: Male
  Weight: 72.5755 kg

DRUGS (5)
  1. DILANTIN KAPSEAL [Suspect]
     Indication: CONVULSION
     Dosage: 300 MG (300 MG, 1 IN 1 D), ORAL
     Route: 048
     Dates: start: 19650101
  2. NEURONTIN [Suspect]
     Indication: CONVULSION
     Dosage: 600 MG (300 MG, 2 IN 1 D), ORAL
     Route: 048
     Dates: start: 20030101
  3. PHENYTOIN [Suspect]
     Indication: CONVULSION
     Dates: start: 20020101
  4. RISPERDAL [Suspect]
     Indication: DEMENTIA
     Dosage: 1 MG (0.5 MG, 2 IN 1 D), ORAL
     Route: 048
     Dates: start: 20020101
  5. FUROSEMIDE (FUROSEMIDE) [Concomitant]

REACTIONS (13)
  - ANTICONVULSANT DRUG LEVEL ABOVE THERAPEUTIC [None]
  - AORTIC STENOSIS [None]
  - CONVULSION [None]
  - DEMENTIA [None]
  - FATIGUE [None]
  - HUNGER [None]
  - INCONTINENCE [None]
  - LOSS OF CONSCIOUSNESS [None]
  - MEDICATION ERROR [None]
  - MULTIPLE DRUG OVERDOSE ACCIDENTAL [None]
  - PHARMACEUTICAL PRODUCT COMPLAINT [None]
  - PROSTATIC DISORDER [None]
  - TREATMENT NONCOMPLIANCE [None]
